FAERS Safety Report 7364586-X (Version None)
Quarter: 2011Q1

REPORT INFORMATION
  Report Type: 
  Country: None (occurrence: None)
  Receive Date: 20110321
  Receipt Date: 20110309
  Transmission Date: 20110831
  Serious: Yes (Other)
  Sender: FDA-Public Use
  Company Number: PHHY2011JP19466

PATIENT
  Age: 81 Year
  Sex: Male

DRUGS (2)
  1. LANSOPRAZOLE [Suspect]
  2. LOCHOL [Suspect]
     Route: 048

REACTIONS (1)
  - CUTANEOUS LUPUS ERYTHEMATOSUS [None]
